FAERS Safety Report 7357712-X (Version None)
Quarter: 2011Q1

REPORT INFORMATION
  Report Type: 
  Country: None (occurrence: None)
  Receive Date: 20110317
  Receipt Date: 20110315
  Transmission Date: 20110831
  Serious: Yes (Life-Threatening)
  Sender: FDA-Public Use
  Company Number: IT-SANOFI-AVENTIS-2011SA015564

PATIENT
  Age: 64 Year
  Sex: Female

DRUGS (1)
  1. ELOXATIN [Suspect]
     Route: 042
     Dates: start: 20110307, end: 20110307

REACTIONS (1)
  - ACUTE RESPIRATORY FAILURE [None]
